FAERS Safety Report 9977930 (Version 1)
Quarter: 2014Q1

REPORT INFORMATION
  Report Type: Report from Study
  Country: US (occurrence: US)
  Receive Date: 20140306
  Receipt Date: 20140306
  Transmission Date: 20141002
  Serious: No
  Sender: FDA-Public Use
  Company Number: US-ABBVIE-13P-163-1161905-00

PATIENT
  Sex: Female
  Weight: 113.5 kg

DRUGS (16)
  1. HUMIRA [Suspect]
     Indication: PSORIASIS
     Dates: start: 2009, end: 2010
  2. HUMIRA [Suspect]
     Dates: start: 2010, end: 2012
  3. HUMIRA [Suspect]
     Dates: start: 2012, end: 201305
  4. HUMIRA [Suspect]
     Dates: start: 201305
  5. METHOTREXATE [Suspect]
     Indication: RHEUMATOID ARTHRITIS
  6. METHOTREXATE [Suspect]
     Indication: PSORIATIC ARTHROPATHY
  7. METHOTREXATE [Suspect]
     Indication: OSTEOARTHRITIS
  8. FOLIC ACID [Concomitant]
     Indication: VITAMIN SUPPLEMENTATION
  9. SKELAXIN [Concomitant]
     Indication: MUSCLE SPASMS
  10. TRAZODONE [Concomitant]
     Indication: INSOMNIA
  11. LASIX [Concomitant]
     Indication: FLUID RETENTION
  12. VITAMIN C [Concomitant]
     Indication: VITAMIN SUPPLEMENTATION
  13. BLACK COHOSH [Concomitant]
     Indication: HORMONE REPLACEMENT THERAPY
  14. CYMBALTA [Concomitant]
     Indication: DEPRESSION
  15. VITAMIN D [Concomitant]
     Indication: VITAMIN SUPPLEMENTATION
  16. VITAMIN E [Concomitant]
     Indication: VITAMIN SUPPLEMENTATION

REACTIONS (6)
  - Rheumatoid arthritis [Not Recovered/Not Resolved]
  - Psoriatic arthropathy [Not Recovered/Not Resolved]
  - Osteoarthritis [Not Recovered/Not Resolved]
  - Alopecia [Unknown]
  - Arthralgia [Not Recovered/Not Resolved]
  - Arthritis [Not Recovered/Not Resolved]
